FAERS Safety Report 5406954-9 (Version None)
Quarter: 2007Q3

REPORT INFORMATION
  Report Type: 
  Country: None (occurrence: None)
  Receive Date: 20070807
  Receipt Date: 20070726
  Transmission Date: 20080115
  Serious: Yes (Death)
  Sender: FDA-Public Use
  Company Number: FR-BAYER-200710442BFR

PATIENT
  Age: 63 Year
  Sex: Female

DRUGS (9)
  1. CIPROFLOXACIN HCL [Suspect]
     Indication: PYREXIA
     Dosage: TOTAL DAILY DOSE: 1 G  UNIT DOSE: 500 MG
     Route: 048
     Dates: start: 20070623, end: 20070628
  2. DURAGESIC-100 [Suspect]
     Indication: UNEVALUABLE EVENT
     Route: 061
     Dates: start: 20070623, end: 20070628
  3. ACETAMINOPHEN W/ PROPOXYPHENE HCL [Suspect]
     Indication: UNEVALUABLE EVENT
     Dates: start: 20070620, end: 20070628
  4. CLAFORAN [Suspect]
     Indication: PYREXIA
     Dosage: TOTAL DAILY DOSE: 3 G  UNIT DOSE: 1 G
     Route: 042
     Dates: start: 20070621, end: 20070628
  5. MOTILIUM [Suspect]
     Indication: UNEVALUABLE EVENT
     Route: 048
     Dates: start: 20070620, end: 20070628
  6. AMIKLIN [Concomitant]
     Indication: PYREXIA
     Route: 042
     Dates: start: 20070625, end: 20070628
  7. FORLAX [Concomitant]
     Indication: UNEVALUABLE EVENT
     Dates: start: 20070620, end: 20070628
  8. TRUSOPT [Concomitant]
     Indication: UNEVALUABLE EVENT
     Dates: start: 20070620, end: 20070628
  9. LOVENOX [Concomitant]
     Indication: UNEVALUABLE EVENT
     Dates: start: 20070625, end: 20070628

REACTIONS (1)
  - COMPLETED SUICIDE [None]
